FAERS Safety Report 4271298-8 (Version None)
Quarter: 2004Q1

REPORT INFORMATION
  Report Type: 
  Country: None (occurrence: None)
  Receive Date: 20040113
  Receipt Date: 20040102
  Transmission Date: 20041129
  Serious: Yes (Hospitalization, Other)
  Sender: FDA-Public Use
  Company Number: 2004000445

PATIENT
  Age: 58 Year
  Sex: Female
  Weight: 67.586 kg

DRUGS (5)
  1. LIPITOR [Suspect]
     Indication: BLOOD CHOLESTEROL INCREASED
     Dosage: 10 MG DAILY, ORAL
     Route: 048
     Dates: end: 20030401
  2. LOPID [Concomitant]
     Indication: BLOOD CHOLESTEROL INCREASED
     Dosage: DAILY, ORAL
     Route: 048
     Dates: start: 20030101
  3. FENOFIBRATE [Suspect]
     Indication: BLOOD CHOLESTEROL INCREASED
     Dosage: DAILY, ORAL
     Route: 048
     Dates: start: 20030501, end: 20030101
  4. ANOVLAR (NORETHISTERONE ACETATE, ETHINYLESTRADIOL) [Concomitant]
  5. ATENOLOL [Concomitant]

REACTIONS (8)
  - ALOPECIA [None]
  - BACK INJURY [None]
  - CONDITION AGGRAVATED [None]
  - HIGH DENSITY LIPOPROTEIN DECREASED [None]
  - HYPOTRICHOSIS [None]
  - LOW DENSITY LIPOPROTEIN INCREASED [None]
  - MULTIPLE ALLERGIES [None]
  - PARAESTHESIA [None]
